FAERS Safety Report 19827998 (Version 1)
Quarter: 2021Q3

REPORT INFORMATION
  Report Type: Spontaneous
  Country: US (occurrence: US)
  Receive Date: 20210914
  Receipt Date: 20210914
  Transmission Date: 20211014
  Serious: Yes (Other)
  Sender: FDA-Public Use
  Company Number: US-PFIZER INC-2021777734

PATIENT
  Age: 73 Year
  Sex: Male

DRUGS (1)
  1. INSPRA [Suspect]
     Active Substance: EPLERENONE
     Dosage: UNK

REACTIONS (2)
  - End stage renal disease [Unknown]
  - Blood aldosterone increased [Unknown]
